FAERS Safety Report 6904626-2 (Version None)
Quarter: 2010Q3

REPORT INFORMATION
  Report Type: 
  Country: None (occurrence: None)
  Receive Date: 20100804
  Receipt Date: 20090623
  Transmission Date: 20110219
  Serious: No
  Sender: FDA-Public Use
  Company Number: US-PFIZER INC-2009198905

PATIENT
  Sex: Female
  Weight: 82.54 kg

DRUGS (4)
  1. LYRICA [Suspect]
     Indication: NEURALGIA
     Dosage: UNK
     Dates: start: 20090201
  2. PROZAC [Concomitant]
     Dosage: 40 MG DAILY
  3. BUSPAR [Concomitant]
     Dosage: 15 MG DAILY
  4. CALCIUM [Concomitant]
     Dosage: UNK

REACTIONS (3)
  - DRY MOUTH [None]
  - DYSURIA [None]
  - WEIGHT INCREASED [None]
